FAERS Safety Report 25193722 (Version 1)
Quarter: 2025Q2

REPORT INFORMATION
  Report Type: Spontaneous
  Country: US (occurrence: None)
  Receive Date: 20250411
  Receipt Date: 20250411
  Transmission Date: 20250717
  Serious: Yes (Disabling, Other)
  Sender: FDA-CTU
  Company Number: None

PATIENT
  Sex: Female

DRUGS (1)
  1. PARAGARD T 380A [Suspect]
     Active Substance: COPPER
     Dates: start: 20090701, end: 20151201

REACTIONS (7)
  - Device dislocation [None]
  - Vaginal haemorrhage [None]
  - Cervix scarring [None]
  - Abortion spontaneous [None]
  - Endometrial thinning [None]
  - Adenomyosis [None]
  - Infertility female [None]
